FAERS Safety Report 19769439 (Version 2)
Quarter: 2021Q3

REPORT INFORMATION
  Report Type: Spontaneous
  Country: CH (occurrence: CH)
  Receive Date: 20210831
  Receipt Date: 20210903
  Transmission Date: 20211014
  Serious: Yes (Death)
  Sender: FDA-Public Use
  Company Number: CH-B.I. PHARMACEUTICALS,INC./RIDGEFIELD-2021-BI-124176

PATIENT
  Age: 70 Year
  Sex: Male
  Weight: 71 kg

DRUGS (3)
  1. OFEV [Suspect]
     Active Substance: NINTEDANIB
     Dates: start: 202012, end: 20210811
  2. OFEV [Suspect]
     Active Substance: NINTEDANIB
     Dosage: AFTER A BREAK IN MAY 2020 DUE TO DIARRHOEA, RESTART OF TREATMENT WITH 2X100MG TO 2X150MG DEPENDING O
     Dates: start: 202006, end: 202012
  3. OFEV [Suspect]
     Active Substance: NINTEDANIB
     Indication: PULMONARY SARCOIDOSIS
     Dates: start: 202001, end: 202005

REACTIONS (2)
  - Pneumonia respiratory syncytial viral [Fatal]
  - Diarrhoea [Unknown]

NARRATIVE: CASE EVENT DATE: 20210801
